FAERS Safety Report 24665492 (Version 1)
Quarter: 2024Q4

REPORT INFORMATION
  Report Type: Spontaneous
  Country: US (occurrence: None)
  Receive Date: 20241126
  Receipt Date: 20241126
  Transmission Date: 20250115
  Serious: Yes (Death, Life-Threatening, Hospitalization)
  Sender: Public
  Company Number: None

PATIENT
  Age: 95 Year
  Sex: Male
  Weight: 66.6 kg

DRUGS (1)
  1. PEMBROLIZUMAB [Suspect]
     Active Substance: PEMBROLIZUMAB
     Indication: Tongue neoplasm malignant stage unspecified
     Dosage: OTHER FREQUENCY : EVERY THREE WEEKS;?
     Route: 041
     Dates: start: 20221031, end: 20221031

REACTIONS (6)
  - Product communication issue [None]
  - Product label issue [None]
  - Autoimmune hepatitis [None]
  - Drug-induced liver injury [None]
  - Hepatic failure [None]
  - Multiple organ dysfunction syndrome [None]

NARRATIVE: CASE EVENT DATE: 20221128
